FAERS Safety Report 4661041-2 (Version None)
Quarter: 2005Q2

REPORT INFORMATION
  Report Type: 
  Country: None (occurrence: None)
  Receive Date: 20050511
  Receipt Date: 20050427
  Transmission Date: 20051028
  Serious: Yes (Other)
  Sender: FDA-Public Use
  Company Number: 2005-00894

PATIENT
  Age: 56 Year
  Sex: Male

DRUGS (3)
  1. INTEGRILIN [Suspect]
     Indication: CORONARY ANGIOPLASTY
     Dosage: IV DRIP
     Route: 041
     Dates: start: 20050427, end: 20050427
  2. PLAVIX [Suspect]
     Indication: CORONARY ANGIOPLASTY
     Dosage: SEE IMAGE
     Route: 048
     Dates: start: 20050424
  3. PLAVIX [Suspect]
     Indication: CORONARY ANGIOPLASTY
     Dosage: SEE IMAGE
     Route: 048
     Dates: start: 20050427

REACTIONS (4)
  - ERYTHEMA [None]
  - INFUSION SITE PRURITUS [None]
  - PRURITUS GENERALISED [None]
  - URTICARIA GENERALISED [None]
